FAERS Safety Report 9347424 (Version 2)
Quarter: 2013Q2

REPORT INFORMATION
  Report Type: Spontaneous
  Country: DE (occurrence: DE)
  Receive Date: 20130613
  Receipt Date: 20130613
  Transmission Date: 20140414
  Serious: Yes (Life-Threatening, Hospitalization, Disabling)
  Sender: FDA-Public Use
  Company Number: DE-009507513-1303DEU013580

PATIENT
  Age: 79 Year
  Sex: Female
  Weight: 55 kg

DRUGS (2)
  1. ZOCOR [Suspect]
     Indication: CORONARY ARTERY DISEASE
     Dosage: 40MG
     Route: 048
     Dates: end: 20130218
  2. XARELTO [Interacting]
     Indication: PERIPHERAL VASCULAR DISORDER
     Dosage: 15 MG
     Route: 048
     Dates: start: 20130128, end: 20130218

REACTIONS (4)
  - Rhabdomyolysis [Recovered/Resolved]
  - Drug interaction [Recovered/Resolved]
  - Arterial occlusive disease [None]
  - Blood potassium increased [None]
